FAERS Safety Report 6370511-0 (Version None)
Quarter: 2009Q3

REPORT INFORMATION
  Report Type: 
  Country: None (occurrence: None)
  Receive Date: 20090923
  Receipt Date: 20090430
  Transmission Date: 20100115
  Serious: Yes (Hospitalization)
  Sender: FDA-Public Use
  Company Number: A0767161A

PATIENT
  Age: 68 Year
  Sex: Female

DRUGS (5)
  1. IMITREX [Suspect]
     Indication: MIGRAINE
     Route: 048
  2. SUMATRIPTAN SUCCINATE [Suspect]
     Indication: MIGRAINE
     Route: 058
  3. SUMATRIPTAN SUCCINATE [Suspect]
     Indication: MIGRAINE
  4. SUMATRIPTAN AUTOINJECTOR [Suspect]
     Indication: MIGRAINE
  5. NO CONCURRENT MEDICATION [Concomitant]

REACTIONS (8)
  - ANEURYSM [None]
  - BLADDER PROLAPSE [None]
  - DEVICE MALFUNCTION [None]
  - DRUG INEFFECTIVE [None]
  - NAUSEA [None]
  - PALPITATIONS [None]
  - PRODUCT QUALITY ISSUE [None]
  - VOMITING [None]
